FAERS Safety Report 8456885-5 (Version None)
Quarter: 2012Q2

REPORT INFORMATION
  Report Type: 
  Country: None (occurrence: None)
  Receive Date: 20120621
  Receipt Date: 20120606
  Transmission Date: 20120825
  Serious: No
  Sender: FDA-Public Use
  Company Number: US-BAYER-2012-058130

PATIENT
  Sex: Female

DRUGS (3)
  1. IBUPROFEN [Suspect]
  2. ALEVE (CAPLET) [Suspect]
     Route: 048
  3. ACETAMINOPHEN [Concomitant]

REACTIONS (2)
  - HYPERSENSITIVITY [None]
  - SWELLING FACE [None]
